FAERS Safety Report 9277962 (Version 1)
Quarter: 2013Q2

REPORT INFORMATION
  Report Type: Spontaneous
  Country: FR (occurrence: FR)
  Receive Date: 20130508
  Receipt Date: 20130508
  Transmission Date: 20140414
  Serious: Yes (Hospitalization)
  Sender: FDA-Public Use
  Company Number: FR-JNJFOC-20130413367

PATIENT
  Age: 89 Year
  Sex: Female

DRUGS (13)
  1. HALDOL [Suspect]
     Indication: ABNORMAL BEHAVIOUR
     Route: 048
     Dates: end: 20120614
  2. DIVARIUS [Suspect]
     Indication: ABNORMAL BEHAVIOUR
     Route: 048
     Dates: start: 201201, end: 20120614
  3. ATEPADENE [Concomitant]
     Indication: BACK PAIN
     Route: 048
     Dates: end: 20120615
  4. SERESTA [Concomitant]
     Indication: PRODUCT USED FOR UNKNOWN INDICATION
     Route: 048
     Dates: end: 20120614
  5. DOLIPRANE [Concomitant]
     Indication: PRODUCT USED FOR UNKNOWN INDICATION
     Route: 048
  6. LECTIL [Concomitant]
     Indication: PRODUCT USED FOR UNKNOWN INDICATION
     Route: 048
     Dates: end: 20120615
  7. PREVISCAN (FLUINDIONE) [Concomitant]
     Indication: PRODUCT USED FOR UNKNOWN INDICATION
     Route: 048
  8. PREVISCAN (FLUINDIONE) [Concomitant]
     Indication: PRODUCT USED FOR UNKNOWN INDICATION
     Dosage: 0.5 DOSE PER DAY ON EVENING
     Route: 048
  9. TAREG [Concomitant]
     Indication: PRODUCT USED FOR UNKNOWN INDICATION
     Route: 048
  10. TEMESTA [Concomitant]
     Indication: PRODUCT USED FOR UNKNOWN INDICATION
     Route: 048
     Dates: end: 20120614
  11. TRANSULOSE [Concomitant]
     Indication: PRODUCT USED FOR UNKNOWN INDICATION
     Route: 048
     Dates: end: 20120615
  12. FURADANTINE [Concomitant]
     Indication: PRODUCT USED FOR UNKNOWN INDICATION
     Route: 048
     Dates: end: 20120615
  13. KEPPRA [Concomitant]
     Indication: ELECTROCARDIOGRAM ABNORMAL
     Route: 065

REACTIONS (3)
  - Convulsion [Recovered/Resolved]
  - Somnolence [Recovered/Resolved]
  - Malaise [Recovered/Resolved]
